FAERS Safety Report 22228675 (Version 2)
Quarter: 2023Q2

REPORT INFORMATION
  Report Type: Spontaneous
  Country: FR (occurrence: FR)
  Receive Date: 20230419
  Receipt Date: 20230519
  Transmission Date: 20230722
  Serious: Yes (Hospitalization)
  Sender: FDA-Public Use
  Company Number: None

PATIENT
  Age: 55 Year
  Sex: Male

DRUGS (22)
  1. VALACYCLOVIR HYDROCHLORIDE [Suspect]
     Active Substance: VALACYCLOVIR HYDROCHLORIDE
     Indication: Bacterial infection
     Dosage: 1000 MILLIGRAM DAILY; 500MG MORNING AND EVENING
     Route: 065
     Dates: start: 20230106
  2. CIPROFLOXACIN [Suspect]
     Active Substance: CIPROFLOXACIN
     Indication: Bacterial infection
     Route: 065
     Dates: start: 20230203, end: 20230208
  3. CASPOFUNGIN ACETATE [Suspect]
     Active Substance: CASPOFUNGIN ACETATE
     Indication: Fungal infection
     Dosage: ((MUSHROOM/GLAREA LOZOYENSIS))
     Route: 065
     Dates: start: 20230126
  4. VINCRISTINE SULFATE [Suspect]
     Active Substance: VINCRISTINE SULFATE
     Indication: Diffuse large B-cell lymphoma
     Dosage: 1 CURE
     Route: 065
     Dates: start: 20221227
  5. ALPRAZOLAM [Suspect]
     Active Substance: ALPRAZOLAM
     Indication: Anxiety
     Dosage: 1 TAB 0.25MG IF ANXIETY
     Route: 065
     Dates: start: 20230106, end: 20230209
  6. PANTOPRAZOLE [Suspect]
     Active Substance: PANTOPRAZOLE
     Indication: Gastritis prophylaxis
     Route: 065
     Dates: start: 20230106
  7. DOXORUBICIN [Suspect]
     Active Substance: DOXORUBICIN
     Indication: Diffuse large B-cell lymphoma
     Dosage: 1 CURE
     Route: 065
     Dates: start: 20221227
  8. ACETAMINOPHEN [Suspect]
     Active Substance: ACETAMINOPHEN
     Indication: Pain
     Dosage: 1 TABLET EVERY 6 HOURS, MAXIMUM 3 TABLETS/DAY
     Route: 065
     Dates: start: 20230211
  9. CEFTRIAXONE [Suspect]
     Active Substance: CEFTRIAXONE
     Indication: Bacterial infection
     Dosage: 2 GRAM DAILY; 1 G MORNING AND EVENING
     Route: 065
     Dates: start: 20230209
  10. NALOXEGOL OXALATE [Suspect]
     Active Substance: NALOXEGOL OXALATE
     Indication: Constipation
     Dosage: IF NECESSARY
     Route: 065
     Dates: start: 20230211
  11. AMITRIPTYLINE HYDROCHLORIDE [Suspect]
     Active Substance: AMITRIPTYLINE HYDROCHLORIDE
     Indication: Pain
     Dosage: 5 DROPS MORNING AND 10 DROPS MIDDAY AND EVENING
     Route: 065
     Dates: start: 20221210
  12. BACTRIM [Suspect]
     Active Substance: SULFAMETHOXAZOLE\TRIMETHOPRIM
     Indication: Bacterial infection
     Dosage: 1 DOSAGE FORMS DAILY; 1 TAB IN THE MORNING (400 MG)
     Route: 065
     Dates: start: 20230106, end: 20230303
  13. CILASTATIN SODIUM\IMIPENEM [Suspect]
     Active Substance: CILASTATIN SODIUM\IMIPENEM
     Indication: Bacterial infection
     Dosage: 1 INJECTION (800 MG) PER DAY, FORM STRENGTH : 500 MG/500 MG
     Route: 065
     Dates: start: 20230114, end: 20230208
  14. ACUPAN [Suspect]
     Active Substance: NEFOPAM HYDROCHLORIDE
     Indication: Pain
     Dosage: ONE AMPOULE EVERY 4 HOURS IF PAIN
     Route: 065
     Dates: start: 20230106, end: 20230302
  15. LOVENOX [Suspect]
     Active Substance: ENOXAPARIN SODIUM
     Indication: Prophylaxis
     Route: 065
     Dates: start: 20230210
  16. ARANESP [Suspect]
     Active Substance: DARBEPOETIN ALFA
     Indication: Anaemia
     Dosage: 1 ADMINISTRATION PER WEEK
     Route: 065
     Dates: start: 20230213
  17. MORPHINE SULFATE [Suspect]
     Active Substance: MORPHINE SULFATE
     Indication: Pain
     Dosage: 60 MILLIGRAM DAILY; 1 TAB SKENAN LP 30MG EVERY 12 HOURS
     Route: 065
     Dates: start: 20230210, end: 20230218
  18. LEUCOVORIN CALCIUM [Suspect]
     Active Substance: LEUCOVORIN CALCIUM
     Indication: Prophylaxis
     Dosage: A CP EVERY MONDAY AND THURSDAY
     Route: 065
     Dates: start: 20230102
  19. METRONIDAZOLE [Suspect]
     Active Substance: METRONIDAZOLE
     Indication: Bacterial infection
     Dosage: 1500 MILLIGRAM DAILY; 500 MG MORNING, NOON AND EVENING
     Route: 065
     Dates: start: 20230209, end: 20230303
  20. RITUXIMAB [Suspect]
     Active Substance: RITUXIMAB
     Indication: Diffuse large B-cell lymphoma
     Dosage: 1 CURE, ((MAMMAL/HAMSTER/CHO CELLS))
     Route: 065
     Dates: start: 20221227
  21. DAPTOMYCIN [Suspect]
     Active Substance: DAPTOMYCIN
     Indication: Bacterial infection
     Route: 065
     Dates: start: 20230211, end: 20230306
  22. CYCLOPHOSPHAMIDE [Suspect]
     Active Substance: CYCLOPHOSPHAMIDE
     Indication: Diffuse large B-cell lymphoma
     Dosage: 1 CURE
     Route: 065
     Dates: start: 20221227

REACTIONS (1)
  - Agranulocytosis [Recovered/Resolved]

NARRATIVE: CASE EVENT DATE: 20230201
